FAERS Safety Report 8822629 (Version 2)
Quarter: 2013Q4

REPORT INFORMATION
  Report Type: Spontaneous
  Country: US (occurrence: US)
  Receive Date: 20121003
  Receipt Date: 20131101
  Transmission Date: 20140711
  Serious: No
  Sender: FDA-Public Use
  Company Number: US-009507513-1208USA009900

PATIENT
  Age: 71 Year
  Sex: Female

DRUGS (2)
  1. HYZAAR [Suspect]
     Indication: HYPERTENSION
     Dosage: 100/25 MILLIGRAM ONCE DAILY
     Route: 048
     Dates: start: 1997
  2. ASPIRIN [Concomitant]

REACTIONS (3)
  - Pain in extremity [Not Recovered/Not Resolved]
  - Product physical issue [Unknown]
  - Headache [Not Recovered/Not Resolved]
